FAERS Safety Report 5258143-9 (Version None)
Quarter: 2007Q1

REPORT INFORMATION
  Report Type: 
  Country: None (occurrence: None)
  Receive Date: 20070307
  Receipt Date: 20070226
  Transmission Date: 20070707
  Serious: Yes (Other)
  Sender: FDA-Public Use
  Company Number: NL-ROXANE LABORATORIES, INC-2007-DE-01320MO

PATIENT
  Age: 84 Year
  Sex: Female

DRUGS (1)
  1. ORAMORPH SR [Suspect]
     Indication: ANALGESIC EFFECT
     Route: 030
     Dates: start: 20061114, end: 20061216

REACTIONS (2)
  - INCORRECT ROUTE OF DRUG ADMINISTRATION [None]
  - INJECTION SITE PAIN [None]
